FAERS Safety Report 23184640 (Version 5)
Quarter: 2023Q4

REPORT INFORMATION
  Report Type: Report from Study
  Country: ES (occurrence: ES)
  Receive Date: 20231115
  Receipt Date: 20231222
  Transmission Date: 20240109
  Serious: Yes (Hospitalization)
  Sender: FDA-Public Use
  Company Number: ES-ABBVIE-5491465

PATIENT
  Age: 44 Year
  Sex: Female
  Weight: 78 kg

DRUGS (22)
  1. HUMIRA [Suspect]
     Active Substance: ADALIMUMAB
     Indication: Colitis ulcerative
     Route: 058
     Dates: start: 201406, end: 20160227
  2. OLANZAPINA VIR [Concomitant]
     Indication: Schizotypal personality disorder
     Route: 048
     Dates: start: 20210412, end: 20210523
  3. OLANZAPINA VIR [Concomitant]
     Indication: Schizotypal personality disorder
     Route: 048
     Dates: start: 20210524, end: 20210712
  4. OLANZAPINA VIR [Concomitant]
     Indication: Schizotypal personality disorder
     Route: 048
     Dates: start: 20210713, end: 20210822
  5. OLANZAPINA VIR [Concomitant]
     Indication: Schizotypal personality disorder
     Route: 048
     Dates: start: 20210823
  6. CARIPRAZINE [Concomitant]
     Active Substance: CARIPRAZINE
     Indication: Schizotypal personality disorder
     Route: 048
     Dates: start: 20210429, end: 20210523
  7. CARIPRAZINE [Concomitant]
     Active Substance: CARIPRAZINE
     Indication: Schizotypal personality disorder
     Route: 048
     Dates: start: 20210524, end: 20210624
  8. CARIPRAZINE [Concomitant]
     Active Substance: CARIPRAZINE
     Indication: Schizotypal personality disorder
     Route: 048
     Dates: start: 20210625, end: 20210712
  9. CARIPRAZINE [Concomitant]
     Active Substance: CARIPRAZINE
     Indication: Schizotypal personality disorder
     Route: 048
     Dates: start: 20210713, end: 20210914
  10. CARIPRAZINE [Concomitant]
     Active Substance: CARIPRAZINE
     Indication: Schizotypal personality disorder
     Route: 048
     Dates: start: 20210915
  11. PAROXETINE [Concomitant]
     Active Substance: PAROXETINE
     Indication: Schizotypal personality disorder
     Route: 048
     Dates: start: 20210416, end: 20210822
  12. PAROXETINE [Concomitant]
     Active Substance: PAROXETINE
     Indication: Schizotypal personality disorder
     Route: 048
     Dates: start: 20210823
  13. LEXATIN [Concomitant]
     Indication: Schizotypal personality disorder
     Dosage: TIME INTERVAL: AS NECESSARY
     Route: 048
     Dates: start: 20210713
  14. VEDOLIZUMAB [Concomitant]
     Active Substance: VEDOLIZUMAB
     Indication: Crohn^s disease
     Dosage: FREQUENCY: ONCE
     Route: 042
     Dates: start: 20220429, end: 20220429
  15. VEDOLIZUMAB [Concomitant]
     Active Substance: VEDOLIZUMAB
     Indication: Crohn^s disease
     Dosage: FREQUENCY: ONCE
     Route: 042
     Dates: start: 20220513, end: 20220513
  16. VEDOLIZUMAB [Concomitant]
     Active Substance: VEDOLIZUMAB
     Indication: Crohn^s disease
     Dosage: FREQUENCY: ONCE
     Route: 042
     Dates: start: 20220610, end: 20220610
  17. VEDOLIZUMAB [Concomitant]
     Active Substance: VEDOLIZUMAB
     Indication: Crohn^s disease
     Route: 042
     Dates: start: 20220808, end: 20221106
  18. VEDOLIZUMAB [Concomitant]
     Active Substance: VEDOLIZUMAB
     Indication: Crohn^s disease
     Route: 042
     Dates: start: 20221107
  19. AZATHIOPRINE [Suspect]
     Active Substance: AZATHIOPRINE
     Indication: Colitis ulcerative
     Route: 048
     Dates: start: 20161221, end: 20180424
  20. AZATHIOPRINE [Suspect]
     Active Substance: AZATHIOPRINE
     Indication: Colitis ulcerative
     Route: 048
     Dates: start: 20180425, end: 20190212
  21. RISANKIZUMAB [Concomitant]
     Active Substance: RISANKIZUMAB
     Indication: Crohn^s disease
     Route: 042
     Dates: start: 20230301, end: 20230324
  22. RISANKIZUMAB [Concomitant]
     Active Substance: RISANKIZUMAB
     Indication: Crohn^s disease
     Route: 058
     Dates: start: 20230325

REACTIONS (1)
  - Crohn^s disease [Recovered/Resolved]

NARRATIVE: CASE EVENT DATE: 20231109
